FAERS Safety Report 12420751 (Version 3)
Quarter: 2016Q3

REPORT INFORMATION
  Report Type: Spontaneous
  Country: US (occurrence: US)
  Receive Date: 20160531
  Receipt Date: 20160802
  Transmission Date: 20161109
  Serious: Yes (Death, Hospitalization, Other)
  Sender: FDA-Public Use
  Company Number: US-BAYER-2016-103991

PATIENT
  Age: 66 Year
  Sex: Female
  Weight: 97.96 kg

DRUGS (10)
  1. GADAVIST [Suspect]
     Active Substance: GADOBUTROL
     Indication: NUCLEAR MAGNETIC RESONANCE IMAGING
     Dosage: 10 ML, ONCE
     Dates: start: 20160520, end: 20160520
  2. GADAVIST [Suspect]
     Active Substance: GADOBUTROL
     Indication: NUCLEAR MAGNETIC RESONANCE IMAGING BRAIN
  3. DIPHENHYDRAMINE. [Concomitant]
     Active Substance: DIPHENHYDRAMINE
  4. ENALAPRIL [Concomitant]
     Active Substance: ENALAPRIL
  5. GADAVIST [Suspect]
     Active Substance: GADOBUTROL
     Indication: MIGRAINE
  6. ADVAIR HFA [Concomitant]
     Active Substance: FLUTICASONE PROPIONATE\SALMETEROL XINAFOATE
  7. ALBUTEROL. [Concomitant]
     Active Substance: ALBUTEROL
  8. OS-CAL [CALCIUM CARBONATE,COLECALCIFEROL] [Concomitant]
  9. NEXIUM [Concomitant]
     Active Substance: ESOMEPRAZOLE MAGNESIUM
  10. COLECALCIFEROL [Concomitant]
     Active Substance: CHOLECALCIFEROL

REACTIONS (6)
  - Anaphylactic reaction [Fatal]
  - Malaise [None]
  - Feeling abnormal [None]
  - Pulse absent [None]
  - Unresponsive to stimuli [None]
  - Circulatory collapse [Fatal]

NARRATIVE: CASE EVENT DATE: 20160520
